FAERS Safety Report 5447941-4 (Version None)
Quarter: 2007Q3

REPORT INFORMATION
  Report Type: 
  Country: None (occurrence: None)
  Receive Date: 20070910
  Receipt Date: 20070827
  Transmission Date: 20080115
  Serious: No
  Sender: FDA-Public Use
  Company Number: US-BOEHRINGER INGELHEIM PHARMACEUTICALS, INC.-2007-BP-19955BP

PATIENT
  Age: 54 Year
  Sex: Female

DRUGS (1)
  1. MELOXICAM TABLETS [Suspect]
     Indication: OSTEOARTHRITIS
     Route: 048
     Dates: start: 20070601, end: 20070601

REACTIONS (4)
  - DIZZINESS [None]
  - HEADACHE [None]
  - INFLUENZA LIKE ILLNESS [None]
  - NAUSEA [None]
